FAERS Safety Report 22308077 (Version 1)
Quarter: 2023Q2

REPORT INFORMATION
  Report Type: Spontaneous
  Country: FR (occurrence: FR)
  Receive Date: 20230511
  Receipt Date: 20230511
  Transmission Date: 20230721
  Serious: Yes (Hospitalization, Other)
  Sender: FDA-Public Use
  Company Number: None

PATIENT
  Age: 41 Year
  Sex: Female
  Weight: 62 kg

DRUGS (4)
  1. DOXYLAMINE SUCCINATE [Suspect]
     Active Substance: DOXYLAMINE SUCCINATE
     Indication: Poisoning deliberate
     Dosage: 120MG, TOTAL
     Route: 048
     Dates: start: 20180914, end: 20180914
  2. TRAMADOL HYDROCHLORIDE [Suspect]
     Active Substance: TRAMADOL HYDROCHLORIDE
     Indication: Poisoning deliberate
     Dosage: 1500MG, TOTAL
     Route: 048
     Dates: start: 20180914, end: 20180914
  3. DICLOFENAC [Suspect]
     Active Substance: DICLOFENAC
     Indication: Poisoning deliberate
     Dosage: 1500MG, TOTAL
     Route: 048
     Dates: start: 20180914, end: 20180914
  4. ATARAX [Suspect]
     Active Substance: HYDROXYZINE HYDROCHLORIDE
     Indication: Poisoning deliberate
     Dosage: 750MG, TOTAL
     Route: 048
     Dates: start: 20180914, end: 20180914

REACTIONS (3)
  - Generalised tonic-clonic seizure [Recovered/Resolved]
  - Coma [Recovered/Resolved]
  - Poisoning deliberate [Recovered/Resolved]

NARRATIVE: CASE EVENT DATE: 20180914
